FAERS Safety Report 8581097-4 (Version None)
Quarter: 2012Q3

REPORT INFORMATION
  Report Type: 
  Country: None (occurrence: None)
  Receive Date: 20120809
  Receipt Date: 20120731
  Transmission Date: 20120928
  Serious: No
  Sender: FDA-Public Use
  Company Number: US-BAYER-2012-077733

PATIENT
  Age: 34 Year
  Sex: Female

DRUGS (3)
  1. ALEVE (CAPLET) [Suspect]
     Indication: HEADACHE
     Dosage: 4 DF, OM
     Route: 048
  2. EXCEDRIN (MIGRAINE) [Concomitant]
  3. ALEVE (CAPLET) [Suspect]
     Indication: MIGRAINE

REACTIONS (1)
  - NO ADVERSE EVENT [None]
